FAERS Safety Report 6939463-6 (Version None)
Quarter: 2010Q3

REPORT INFORMATION
  Report Type: 
  Country: None (occurrence: None)
  Receive Date: 20100819
  Receipt Date: 20100811
  Transmission Date: 20110219
  Serious: Yes (Other)
  Sender: FDA-Public Use
  Company Number: 017171

PATIENT
  Age: 24 Month
  Sex: Male

DRUGS (7)
  1. LEVETIRACETAM [Suspect]
  2. LEVODOPA (LEVODOPA) [Suspect]
  3. TRIHEXYPHENIDYL HCL [Suspect]
  4. HALOPERIDOL [Suspect]
  5. CARBAMAZEPINE [Suspect]
  6. CLOBAZAM (CLOBAZAM) [Suspect]
  7. VALPROATE SODIUM [Suspect]

REACTIONS (2)
  - DYSTONIA [None]
  - MYOCLONUS [None]
